FAERS Safety Report 11251428 (Version 2)
Quarter: 2015Q3

REPORT INFORMATION
  Report Type: Spontaneous
  Country: US (occurrence: US)
  Receive Date: 20150708
  Receipt Date: 20150803
  Transmission Date: 20151125
  Serious: No
  Sender: FDA-Public Use
  Company Number: US-ELI_LILLY_AND_COMPANY-US201202004845

PATIENT
  Age: 42 Year
  Sex: Male

DRUGS (2)
  1. ZYPREXA RELPREVV [Suspect]
     Active Substance: OLANZAPINE PAMOATE
     Indication: SCHIZOPHRENIA
     Dosage: 480 MG, MONTHLY (1/M)
     Route: 030
     Dates: start: 201112
  2. ZYPREXA [Suspect]
     Active Substance: OLANZAPINE
     Indication: SCHIZOPHRENIA
     Dosage: 30 MG, QD
     Route: 048
     Dates: start: 201012, end: 201112

REACTIONS (4)
  - Micturition urgency [Unknown]
  - Intentional product misuse [Recovered/Resolved]
  - Prescribed overdose [Recovered/Resolved]
  - Urinary retention [Unknown]

NARRATIVE: CASE EVENT DATE: 201012
